FAERS Safety Report 7850452-X (Version None)
Quarter: 2011Q4

REPORT INFORMATION
  Report Type: 
  Country: None (occurrence: None)
  Receive Date: 20111026
  Receipt Date: 20111026
  Transmission Date: 20120403
  Serious: No
  Sender: FDA-Public Use
  Company Number: None

PATIENT
  Age: 56 Year
  Sex: Female
  Weight: 70.306 kg

DRUGS (1)
  1. RESTASIS [Suspect]
     Indication: DRY EYE
     Dosage: 1 DROP
     Dates: start: 20111010, end: 20111017

REACTIONS (4)
  - EYELID PAIN [None]
  - EYE PAIN [None]
  - EYELID OEDEMA [None]
  - EYE SWELLING [None]
